FAERS Safety Report 8792131 (Version 1)
Quarter: 2012Q4

REPORT INFORMATION
  Report Type: 
  Country: GB (occurrence: GB)
  Receive Date: 20120918
  Receipt Date: 20120918
  Transmission Date: 20130627
  Serious: Yes (Death)
  Sender: FDA-Public Use
  Company Number: GB-NOVOPROD-359336

PATIENT
  Age: 61 Year
  Sex: Female
  Weight: 144.5 kg

DRUGS (14)
  1. VICTOZA [Suspect]
     Indication: DIABETES MELLITUS
     Dosage: 1.2 mg, UNK
     Route: 058
     Dates: start: 20100225, end: 20100628
  2. ALFACALCIDOL [Concomitant]
  3. AMITRIPTYLINE [Concomitant]
  4. AMLODIPINE [Concomitant]
  5. ASPIRIN [Concomitant]
  6. CALCICHEW [Concomitant]
  7. CREON [Concomitant]
  8. EZETIMIBE [Concomitant]
  9. LISINOPRIL [Concomitant]
  10. METFORMIN [Concomitant]
     Dosage: 850 mg, (3/)
     Route: 048
  11. PREGABALIN [Concomitant]
  12. SIMVASTATIN [Concomitant]
  13. THYROXINE [Concomitant]
  14. TRAMADOL [Concomitant]

REACTIONS (1)
  - Sudden death [Fatal]
